FAERS Safety Report 11659933 (Version 1)
Quarter: 2015Q4

REPORT INFORMATION
  Report Type: Spontaneous
  Country: US (occurrence: None)
  Receive Date: 20151023
  Receipt Date: 20151023
  Transmission Date: 20160304
  Serious: Yes (Disabling)
  Sender: FDA-Public Use
  Company Number: None

PATIENT
  Age: 73 Year
  Sex: Female
  Weight: 63.5 kg

DRUGS (12)
  1. MULTI-VITAMIN FOR WOMEN [Concomitant]
  2. AMLODIPINE [Concomitant]
     Active Substance: AMLODIPINE BESYLATE
  3. BETHANACHOL [Concomitant]
  4. XANAX [Concomitant]
     Active Substance: ALPRAZOLAM
  5. VITAMIN D3 [Concomitant]
     Active Substance: CHOLECALCIFEROL
  6. EXEMESTANE 25 MG GREENSTONE [Suspect]
     Active Substance: EXEMESTANE
     Indication: BREAST CANCER
     Dosage: 1 PILL
     Route: 048
     Dates: start: 20150701, end: 20150720
  7. LUTEIN [Concomitant]
     Active Substance: LUTEIN
  8. ATENOLOL. [Concomitant]
     Active Substance: ATENOLOL
  9. CALCIUM/MAGNESIUM [Concomitant]
  10. BIOTIN [Concomitant]
     Active Substance: BIOTIN
  11. VITAMIN B12 [Concomitant]
     Active Substance: CYANOCOBALAMIN
  12. OMEGA-3 ACIDS [Concomitant]
     Active Substance: OMEGA-3 FATTY ACIDS

REACTIONS (4)
  - Rash [None]
  - Sunburn [None]
  - Erythema [None]
  - Skin exfoliation [None]

NARRATIVE: CASE EVENT DATE: 20150717
